FAERS Safety Report 14560397 (Version 3)
Quarter: 2018Q3

REPORT INFORMATION
  Report Type: Report from Study
  Country: CA (occurrence: CA)
  Receive Date: 20180222
  Receipt Date: 20180831
  Transmission Date: 20181010
  Serious: Yes (Other)
  Sender: FDA-Public Use
  Company Number: CA-BRISTOL-MYERS SQUIBB COMPANY-BMS-2018-013727

PATIENT
  Age: 59 Year
  Sex: Female

DRUGS (1)
  1. ABATACEPT [Suspect]
     Active Substance: ABATACEPT
     Indication: RHEUMATOID ARTHRITIS
     Dosage: 750 MG, Q4WK
     Route: 042
     Dates: start: 2008

REACTIONS (4)
  - Cataract [Recovering/Resolving]
  - Fatigue [Unknown]
  - Blood iron decreased [Recovering/Resolving]
  - Thyroid hormones increased [Recovering/Resolving]

NARRATIVE: CASE EVENT DATE: 20180615
